FAERS Safety Report 8604763-0 (Version None)
Quarter: 2012Q3

REPORT INFORMATION
  Report Type: 
  Country: None (occurrence: None)
  Receive Date: 20120820
  Receipt Date: 20120816
  Transmission Date: 20120928
  Serious: Yes (Other)
  Sender: FDA-Public Use
  Company Number: US-PFIZER INC-2012201963

PATIENT
  Age: 46 Year
  Sex: Female

DRUGS (9)
  1. VENLAFAXINE [Suspect]
     Indication: ANXIETY
     Dosage: 56.25 MG, 1X/DAY
     Dates: start: 20120701
  2. VENLAFAXINE [Suspect]
     Indication: DEPRESSION
  3. YAZ [Suspect]
     Indication: CONTRACEPTION
     Dosage: 150 MG, 1X/DAY
  4. FOSAMAX [Concomitant]
     Indication: OSTEOPOROSIS
  5. EFFEXOR XR [Suspect]
     Indication: ANXIETY
     Dosage: 37.5 MG, 1X/DAY
     Dates: end: 20080401
  6. PRISTIQ [Suspect]
     Indication: DEPRESSION
  7. PRISTIQ [Suspect]
     Indication: ANXIETY
     Dosage: 50 MG, 1X/DAY
     Dates: start: 20080501, end: 20120401
  8. FOSAMAX [Concomitant]
     Indication: OSTEOPENIA
     Dosage: 35 MG, WEEKLY
  9. EFFEXOR XR [Suspect]
     Indication: DEPRESSION

REACTIONS (1)
  - HYPERTENSION [None]
